FAERS Safety Report 22931220 (Version 2)
Quarter: 2023Q4

REPORT INFORMATION
  Report Type: Spontaneous
  Country: FR (occurrence: FR)
  Receive Date: 20230911
  Receipt Date: 20231020
  Transmission Date: 20240110
  Serious: Yes (Other)
  Sender: FDA-Public Use
  Company Number: FR-PFIZER INC-PV202300151499

PATIENT
  Age: 71 Year
  Sex: Female
  Weight: 69 kg

DRUGS (4)
  1. LORLATINIB [Suspect]
     Active Substance: LORLATINIB
     Indication: Adenocarcinoma
     Dosage: 50 MG, DAILY
     Route: 048
  2. GABAPENTIN [Concomitant]
     Active Substance: GABAPENTIN
  3. BISOPROLOL [Concomitant]
     Active Substance: BISOPROLOL\BISOPROLOL FUMARATE
  4. ELIQUIS [Concomitant]
     Active Substance: APIXABAN

REACTIONS (14)
  - Feeling abnormal [Recovering/Resolving]
  - Cognitive disorder [Recovering/Resolving]
  - Speech disorder [Not Recovered/Not Resolved]
  - Disorientation [Recovering/Resolving]
  - Disturbance in attention [Recovering/Resolving]
  - Confusional state [Recovering/Resolving]
  - Impaired driving ability [Recovering/Resolving]
  - Hallucination [Not Recovered/Not Resolved]
  - Neoplasm progression [Unknown]
  - Hypercholesterolaemia [Recovering/Resolving]
  - Restless legs syndrome [Not Recovered/Not Resolved]
  - Condition aggravated [Not Recovered/Not Resolved]
  - Apraxia [Not Recovered/Not Resolved]
  - Memory impairment [Not Recovered/Not Resolved]
